FAERS Safety Report 7411504-1 (Version None)
Quarter: 2011Q2

REPORT INFORMATION
  Report Type: 
  Country: None (occurrence: None)
  Receive Date: 20110413
  Receipt Date: 20110405
  Transmission Date: 20111010
  Serious: Yes (Hospitalization)
  Sender: FDA-Public Use
  Company Number: PHHO2011FR06116

PATIENT
  Sex: Male
  Weight: 69 kg

DRUGS (9)
  1. STI571/CGP57148B [Suspect]
     Indication: ACUTE LYMPHOCYTIC LEUKAEMIA
     Dosage: 400 MG, BID
     Route: 048
     Dates: start: 20110301
  2. STILNOX [Concomitant]
  3. ZELITREX [Concomitant]
  4. TAVANIC [Concomitant]
  5. CYTARABINE [Suspect]
     Indication: ACUTE LYMPHOCYTIC LEUKAEMIA
     Dosage: 5650 MG, UNK
     Route: 042
     Dates: start: 20110303
  6. METHOTREXATE [Suspect]
     Indication: ACUTE LYMPHOCYTIC LEUKAEMIA
     Dosage: 1900 MG, UNK
     Route: 042
     Dates: start: 20110301
  7. DUPHALAC [Concomitant]
     Indication: CONSTIPATION
  8. MOPRAL [Concomitant]
     Indication: REFLUX GASTRITIS
  9. EFFERALGAN [Concomitant]

REACTIONS (1)
  - FEBRILE BONE MARROW APLASIA [None]
